FAERS Safety Report 9219712 (Version 1)
Quarter: 2013Q2

REPORT INFORMATION
  Report Type: Spontaneous
  Country: US (occurrence: None)
  Receive Date: 20130408
  Receipt Date: 20130408
  Transmission Date: 20140414
  Serious: Yes (Hospitalization)
  Sender: FDA-Public Use
  Company Number: None

PATIENT
  Age: 76 Year
  Sex: Female
  Weight: 45.18 kg

DRUGS (2)
  1. CARBOPLATIN (241240) [Suspect]
  2. PACLITAXEL (TAXOL) [Suspect]

REACTIONS (5)
  - Escherichia test positive [None]
  - Abdominal wall abscess [None]
  - Small intestinal obstruction [None]
  - Gastrointestinal disorder postoperative [None]
  - Abdominal adhesions [None]
